FAERS Safety Report 7110368-3 (Version None)
Quarter: 2010Q4

REPORT INFORMATION
  Report Type: 
  Country: None (occurrence: None)
  Receive Date: 20101112
  Receipt Date: 20101027
  Transmission Date: 20110411
  Serious: Yes (Hospitalization, Disabling)
  Sender: FDA-Public Use
  Company Number: 1-17240391

PATIENT
  Age: 50 Year
  Sex: Female
  Weight: 161.0269 kg

DRUGS (9)
  1. QUININE SULFATE [Suspect]
     Indication: MUSCLE SPASMS
     Dosage: 324 MG, AT BEDTIME (PRN), ORAL
     Route: 048
     Dates: start: 20021001
  2. INSULIN [Concomitant]
  3. GLUCOVANCE (GLYBURIDE AND METFORMIN HCL) [Concomitant]
  4. ASPIRIN [Concomitant]
  5. METOPROLOL [Concomitant]
  6. LISINOPRIL [Concomitant]
  7. PROTONIX [Concomitant]
  8. METFORMIN [Concomitant]
  9. SIMVASTATIN [Concomitant]

REACTIONS (7)
  - DRUG HYPERSENSITIVITY [None]
  - GASTROINTESTINAL DISORDER [None]
  - HYPERTENSION [None]
  - HYPOGLYCAEMIA [None]
  - IDIOPATHIC THROMBOCYTOPENIC PURPURA [None]
  - OBESITY SURGERY [None]
  - PAIN [None]
